FAERS Safety Report 5216884-3 (Version None)
Quarter: 2007Q1

REPORT INFORMATION
  Report Type: 
  Country: None (occurrence: None)
  Receive Date: 20070119
  Receipt Date: 20070108
  Transmission Date: 20070707
  Serious: No
  Sender: FDA-Public Use
  Company Number: 1022556-2007-00002

PATIENT
  Sex: Female

DRUGS (2)
  1. UNISOM [Suspect]
     Indication: SLEEP DISORDER
     Dosage: 1 TAB DAILY, ORAL; SINGLE DOSE
     Route: 048
  2. CLONIDINE [Concomitant]

REACTIONS (2)
  - ABASIA [None]
  - MUSCULAR WEAKNESS [None]
